FAERS Safety Report 8374536-5 (Version None)
Quarter: 2012Q2

REPORT INFORMATION
  Report Type: 
  Country: None (occurrence: None)
  Receive Date: 20120521
  Receipt Date: 20120507
  Transmission Date: 20120825
  Serious: Yes (Other)
  Sender: FDA-Public Use
  Company Number: US-JNJFOC-20120508918

PATIENT
  Sex: Female

DRUGS (5)
  1. FENTANYL-100 [Suspect]
     Route: 062
     Dates: start: 20110101, end: 20110101
  2. FENTANYL-100 [Suspect]
     Indication: PAIN
     Route: 062
     Dates: end: 20120506
  3. UNKNOWN MEDICATION [Concomitant]
     Route: 048
  4. FENTANYL-100 [Suspect]
     Dosage: 50+25 MCG (2X12.5)
     Route: 062
     Dates: start: 20120201
  5. FENTANYL-100 [Suspect]
     Dosage: NDC # 0781-7242-55
     Route: 062
     Dates: start: 20110101, end: 20120201

REACTIONS (5)
  - MENTAL IMPAIRMENT [None]
  - ARTHRALGIA [None]
  - PAIN [None]
  - EXPRESSIVE LANGUAGE DISORDER [None]
  - MENOPAUSE [None]
